FAERS Safety Report 5968475-4 (Version None)
Quarter: 2008Q4

REPORT INFORMATION
  Report Type: 
  Country: None (occurrence: None)
  Receive Date: 20081126
  Receipt Date: 20081120
  Transmission Date: 20090506
  Serious: Yes (Hospitalization)
  Sender: FDA-Public Use
  Company Number: US-JNJFOC-20071106260

PATIENT
  Sex: Female
  Weight: 56.82 kg

DRUGS (1)
  1. ORTHO EVRA [Suspect]
     Indication: CONTRACEPTION
     Route: 062

REACTIONS (1)
  - DYSFUNCTIONAL UTERINE BLEEDING [None]
